FAERS Safety Report 16868933 (Version 1)
Quarter: 2019Q3

REPORT INFORMATION
  Report Type: Report from Study
  Country: KR (occurrence: KR)
  Receive Date: 20190930
  Receipt Date: 20190930
  Transmission Date: 20191005
  Serious: Yes (Hospitalization)
  Sender: FDA-Public Use
  Company Number: PHHO2019KR009512

PATIENT
  Age: 67 Year
  Sex: Male

DRUGS (20)
  1. BLINDED NO TREATMENT RECEIVED [Suspect]
     Active Substance: INVESTIGATIONAL PRODUCT
     Indication: NON-SMALL CELL LUNG CANCER
     Dosage: CODE NOT BROKEN
     Route: 058
     Dates: start: 20190716
  2. COMPARATOR PEMETREXED [Suspect]
     Active Substance: PEMETREXED DISODIUM
     Indication: NON-SMALL CELL LUNG CANCER
     Dosage: UNK
     Route: 042
     Dates: start: 20190716
  3. FENTANYL. [Concomitant]
     Active Substance: FENTANYL
     Indication: CANCER PAIN
     Dosage: UNK
     Route: 065
     Dates: start: 20190530
  4. EPERISONE HCL [Concomitant]
     Indication: PROPHYLAXIS
     Dosage: UNK
     Route: 065
     Dates: start: 20190715
  5. BLINDED ACZ885 [Suspect]
     Active Substance: CANAKINUMAB
     Indication: NON-SMALL CELL LUNG CANCER
     Dosage: CODE NOT BROKEN
     Route: 058
     Dates: start: 20190716
  6. COMPARATOR CARBOPLATIN [Suspect]
     Active Substance: CARBOPLATIN
     Indication: NON-SMALL CELL LUNG CANCER
     Dosage: UNK
     Route: 042
     Dates: start: 20190716
  7. COMPARATOR PEMBROLIZUMAB [Suspect]
     Active Substance: PEMBROLIZUMAB
     Indication: NON-SMALL CELL LUNG CANCER
     Dosage: UNK
     Route: 042
     Dates: start: 20190716
  8. COBAMAMIDE [Concomitant]
     Active Substance: COBAMAMIDE
     Indication: DRUG TOXICITY PROPHYLAXIS
     Dosage: UNK
     Route: 065
     Dates: start: 20190715
  9. APREPITANT. [Concomitant]
     Active Substance: APREPITANT
     Indication: DRUG TOXICITY PROPHYLAXIS
     Dosage: UNK
     Route: 065
     Dates: start: 20190717
  10. TARGIN [Concomitant]
     Active Substance: NALOXONE HYDROCHLORIDE\OXYCODONE HYDROCHLORIDE
     Indication: CANCER PAIN
     Dosage: UNK
     Route: 065
     Dates: start: 20190516
  11. LACTULOSE. [Concomitant]
     Active Substance: LACTULOSE
     Indication: CONSTIPATION PROPHYLAXIS
     Dosage: UNK
     Route: 065
     Dates: start: 20190726
  12. BLINDED PLACEBO [Suspect]
     Active Substance: INVESTIGATIONAL PRODUCT
     Indication: NON-SMALL CELL LUNG CANCER
     Dosage: CODE NOT BROKEN
     Route: 058
     Dates: start: 20190716
  13. MEGESTROL ACETATE. [Concomitant]
     Active Substance: MEGESTROL ACETATE
     Indication: DECREASED APPETITE
     Dosage: UNK
     Route: 065
     Dates: start: 20190516
  14. STILLEN [Concomitant]
     Indication: PROPHYLAXIS
     Dosage: UNK
     Route: 065
     Dates: start: 20190715
  15. FOLIC ACID. [Concomitant]
     Active Substance: FOLIC ACID
     Indication: DRUG TOXICITY PROPHYLAXIS
     Dosage: UNK
     Route: 065
     Dates: start: 20190505
  16. VARIDASE [Concomitant]
     Indication: CELLULITIS
     Dosage: UNK
     Route: 065
     Dates: start: 20190715
  17. CEFACLOR. [Concomitant]
     Active Substance: CEFACLOR
     Indication: CELLULITIS
     Dosage: UNK
     Route: 065
     Dates: start: 20190715
  18. DEXAMETHASONE. [Concomitant]
     Active Substance: DEXAMETHASONE
     Indication: DRUG TOXICITY PROPHYLAXIS
     Dosage: UNK
     Route: 065
     Dates: start: 20190717
  19. FAMOTIDINE. [Concomitant]
     Active Substance: FAMOTIDINE
     Indication: PROPHYLAXIS
     Dosage: UNK
     Route: 065
     Dates: start: 20190508
  20. OXYCODONE HYDROCHLORIDE. [Concomitant]
     Active Substance: OXYCODONE HYDROCHLORIDE
     Indication: CANCER PAIN
     Dosage: UNK
     Route: 065
     Dates: start: 20190502

REACTIONS (1)
  - Urinary tract infection [Not Recovered/Not Resolved]

NARRATIVE: CASE EVENT DATE: 20190906
